FAERS Safety Report 22821191 (Version 2)
Quarter: 2023Q4

REPORT INFORMATION
  Report Type: Spontaneous
  Country: US (occurrence: US)
  Receive Date: 20230814
  Receipt Date: 20231017
  Transmission Date: 20240109
  Serious: Yes (Hospitalization, Other)
  Sender: FDA-Public Use
  Company Number: US-PFIZER INC-202300273736

PATIENT
  Age: 75 Year
  Sex: Male

DRUGS (5)
  1. INLYTA [Suspect]
     Active Substance: AXITINIB
     Dosage: 3 TABLETS IN THE MORNING AND 3 TABLETS IN THE EVENING
     Dates: start: 20220729
  2. INLYTA [Suspect]
     Active Substance: AXITINIB
     Dosage: THREE 1MG TABLETS TWICE DAILY
     Route: 048
     Dates: end: 20230917
  3. KEYTRUDA [Concomitant]
     Active Substance: PEMBROLIZUMAB
     Dosage: UNK
  4. XGEVA [Concomitant]
     Active Substance: DENOSUMAB
     Dosage: UNK
  5. ASPIRIN [Concomitant]
     Active Substance: ASPIRIN
     Dosage: UNK

REACTIONS (2)
  - Thrombosis [Unknown]
  - Infection [Unknown]

NARRATIVE: CASE EVENT DATE: 20230917
